FAERS Safety Report 4538135-5 (Version None)
Quarter: 2004Q4

REPORT INFORMATION
  Report Type: 
  Country: None (occurrence: None)
  Receive Date: 20041221
  Receipt Date: 20041213
  Transmission Date: 20050328
  Serious: Yes (Death, Other)
  Sender: FDA-Public Use
  Company Number: TPG2004A00312

PATIENT
  Age: 72 Year
  Sex: Male

DRUGS (13)
  1. ACTOS [Suspect]
     Indication: DIABETES MELLITUS NON-INSULIN-DEPENDENT
     Dosage: 15 MG (15 MG, 1 IN 1 D) PER ORAL; 30 MG (30 MG, 1 IN 1 D) PER ORAL
     Route: 048
     Dates: start: 20040629, end: 20040721
  2. ACTOS [Suspect]
     Indication: DIABETES MELLITUS NON-INSULIN-DEPENDENT
     Dosage: 15 MG (15 MG, 1 IN 1 D) PER ORAL; 30 MG (30 MG, 1 IN 1 D) PER ORAL
     Route: 048
     Dates: start: 20040722, end: 20040927
  3. AQUAPHOR   (XIPAMIDE) [Concomitant]
  4. ASS 100    (ACETYLSALICYIC ACID) [Concomitant]
  5. BISOGAMMA (BISOPROLOL FUMARATE) [Concomitant]
  6. FERRO SANOL DUODENAL (FERROUS SULFATE) [Concomitant]
  7. GLUCOBAY [Concomitant]
  8. HEITRIN   (TERAZOSIN HYDROCHLORIDE) [Concomitant]
  9. IS 5 RETARD (ISOSORBIDE MONONITRATE) [Concomitant]
  10. LORZAAR (LOSARTAN POTASSIUM) [Concomitant]
  11. NEORECORMON (EPOETIN BETA) [Concomitant]
  12. OMEPRAZOLE [Concomitant]
  13. PRAVASIN PROTECT (PRAVASTATIN SODIUM) [Concomitant]

REACTIONS (7)
  - CONDITION AGGRAVATED [None]
  - CORONARY ARTERY DISEASE [None]
  - CORONARY ARTERY OCCLUSION [None]
  - EOSINOPHILIA [None]
  - NEPHRITIS ALLERGIC [None]
  - NEPHRITIS INTERSTITIAL [None]
  - RENAL FAILURE CHRONIC [None]
